FAERS Safety Report 8321420 (Version 3)
Quarter: 2013Q3

REPORT INFORMATION
  Report Type: Spontaneous
  Country: JP (occurrence: JP)
  Receive Date: 20120104
  Receipt Date: 20130916
  Transmission Date: 20140515
  Serious: Yes (Death, Hospitalization)
  Sender: FDA-Public Use
  Company Number: JP-GLAXOSMITHKLINE-B0755612A

PATIENT
  Age: 59 Year
  Sex: Male

DRUGS (8)
  1. LAMICTAL [Suspect]
     Indication: BIPOLAR I DISORDER
     Dosage: 25MG PER DAY
     Route: 048
     Dates: start: 20110203, end: 20110216
  2. LAMICTAL [Suspect]
     Indication: BIPOLAR I DISORDER
     Dosage: 25MG PER DAY
     Route: 048
     Dates: start: 20110217, end: 20110304
  3. LAMICTAL [Suspect]
     Indication: BIPOLAR DISORDER
     Dosage: 25MG TWICE PER DAY
     Route: 048
  4. VALERIN [Concomitant]
     Indication: BIPOLAR DISORDER
     Dosage: 400MG TWICE PER DAY
     Route: 048
  5. DEPAS [Concomitant]
     Indication: ANXIETY
     Dosage: .5MG THREE TIMES PER DAY
     Route: 048
  6. TETRAMIDE [Concomitant]
     Indication: HYPNOTHERAPY
     Dosage: 30MG PER DAY
     Route: 048
  7. ROHYPNOL [Concomitant]
     Indication: HYPNOTHERAPY
     Dosage: 2MG PER DAY
     Route: 048
  8. LOSIZOPILON [Concomitant]
     Indication: BIPOLAR I DISORDER
     Dosage: 25MG THREE TIMES PER DAY
     Route: 048

REACTIONS (15)
  - Drug reaction with eosinophilia and systemic symptoms [Fatal]
  - Drug eruption [Recovering/Resolving]
  - Toxic epidermal necrolysis [Unknown]
  - Pulmonary alveolar haemorrhage [Fatal]
  - Pneumonia [Unknown]
  - Bacteraemia [Unknown]
  - Hepatic function abnormal [Unknown]
  - Cytomegalovirus infection [Unknown]
  - Sepsis [Fatal]
  - Lymphadenopathy [Unknown]
  - Human herpesvirus 6 infection [Unknown]
  - Human herpes virus 6 serology positive [Unknown]
  - Cytomegalovirus test positive [Unknown]
  - White blood cell count increased [Unknown]
  - Eosinophil percentage increased [Unknown]
